FAERS Safety Report 5888350-3 (Version None)
Quarter: 2008Q3

REPORT INFORMATION
  Report Type: 
  Country: None (occurrence: None)
  Receive Date: 20080918
  Receipt Date: 20080910
  Transmission Date: 20090109
  Serious: Yes (Hospitalization)
  Sender: FDA-Public Use
  Company Number: FR-SANOFI-SYNTHELABO-A02200802458

PATIENT
  Sex: Male

DRUGS (6)
  1. VANCOMYCIN HCL [Suspect]
     Indication: DRUG USE FOR UNKNOWN INDICATION
     Dosage: 750 MG BID IN WEEK
     Route: 042
  2. CALCIPRAT [Suspect]
     Indication: DRUG USE FOR UNKNOWN INDICATION
     Route: 002
  3. DAFALGAN [Suspect]
     Indication: DRUG USE FOR UNKNOWN INDICATION
     Route: 048
  4. LOPRESSOR [Suspect]
     Indication: DRUG USE FOR UNKNOWN INDICATION
     Route: 048
  5. FRAXIPARINE [Suspect]
     Indication: DIALYSIS
     Dosage: 2850 AT THE BEGINNING OF SESSION 3 IN WEEK
     Route: 058
  6. KAYEXALATE [Suspect]
     Indication: DRUG USE FOR UNKNOWN INDICATION
     Route: 048

REACTIONS (1)
  - HAEMOLYSIS [None]
